FAERS Safety Report 15688243 (Version 1)
Quarter: 2018Q4

REPORT INFORMATION
  Report Type: Spontaneous
  Country: FR (occurrence: FR)
  Receive Date: 20181205
  Receipt Date: 20181205
  Transmission Date: 20190205
  Serious: Yes (Hospitalization)
  Sender: FDA-Public Use
  Company Number: FR-SUN PHARMACEUTICAL INDUSTRIES LTD-2018RR-192649

PATIENT
  Age: 50 Year
  Sex: Female

DRUGS (4)
  1. BROMAZEPAM [Suspect]
     Active Substance: BROMAZEPAM
     Indication: TOXICITY TO VARIOUS AGENTS
     Dosage: 1 FLACON
     Route: 048
     Dates: start: 20181108
  2. DEPAMIDE 300 MG, COMPRIME PELLICULE GASTRO-RESISTANT [Suspect]
     Active Substance: VALPROMIDE
     Indication: TOXICITY TO VARIOUS AGENTS
     Route: 048
     Dates: start: 20181108
  3. PARACETAMOL [Suspect]
     Active Substance: ACETAMINOPHEN
     Indication: TOXICITY TO VARIOUS AGENTS
     Dosage: 30 GRAM
     Route: 048
     Dates: start: 20181108
  4. PAROXETINE. [Suspect]
     Active Substance: PAROXETINE
     Indication: TOXICITY TO VARIOUS AGENTS
     Dosage: 29 DOSAGE FORM
     Route: 048
     Dates: start: 20181108

REACTIONS (4)
  - Vomiting [Recovered/Resolved]
  - Toxicity to various agents [Recovered/Resolved]
  - Hypotension [Recovered/Resolved]
  - Bronchospasm [Unknown]

NARRATIVE: CASE EVENT DATE: 20181108
